FAERS Safety Report 20439725 (Version 1)
Quarter: 2022Q1

REPORT INFORMATION
  Report Type: Spontaneous
  Country: FR (occurrence: FR)
  Receive Date: 20220207
  Receipt Date: 20220207
  Transmission Date: 20220424
  Serious: Yes (Other)
  Sender: FDA-Public Use
  Company Number: None

PATIENT
  Age: 20 Year
  Sex: Female

DRUGS (7)
  1. QUETIAPINE [Suspect]
     Active Substance: QUETIAPINE
     Indication: Product used for unknown indication
     Dosage: 300 MG, QD (2 COMPRIMES/JOUR)
     Route: 048
     Dates: start: 20220107
  2. QUETIAPINE [Suspect]
     Active Substance: QUETIAPINE
     Dosage: 300 MG (3 OU 5 COMPRIMES (PAR VOIE NASALE) RAPPORTES)
     Route: 045
     Dates: start: 20220110, end: 20220111
  3. COCAINE [Suspect]
     Active Substance: COCAINE
     Indication: Product used for unknown indication
     Dosage: UNK (1 TRACE TOUTES LES 3H, 1-2G/JOUR)
     Route: 045
  4. COCAINE [Suspect]
     Active Substance: COCAINE
     Dosage: UNK (1 TRACE OU 1 GRAMME ANNONCES)
     Route: 045
     Dates: start: 20220111, end: 20220111
  5. CANNABIS SATIVA SUBSP. INDICA TOP [Suspect]
     Active Substance: CANNABIS SATIVA SUBSP. INDICA TOP
     Indication: Product used for unknown indication
     Dosage: UNK (2 JOINTS/ JOUR)
     Route: 055
  6. VALIUM [Suspect]
     Active Substance: DIAZEPAM
     Indication: Product used for unknown indication
     Dosage: 10 MG, QD (8 COMPRIMES/JOUR)
     Route: 048
  7. VALIUM [Suspect]
     Active Substance: DIAZEPAM
     Dosage: 10 MG (12 COMPRIMES RAPPORTES)
     Route: 065
     Dates: start: 20220110, end: 20220111

REACTIONS (3)
  - Substance abuse [Unknown]
  - Dysarthria [Recovered/Resolved]
  - Intentional product misuse [Unknown]

NARRATIVE: CASE EVENT DATE: 20220111
